FAERS Safety Report 11253495 (Version 6)
Quarter: 2016Q1

REPORT INFORMATION
  Report Type: Spontaneous
  Country: CA (occurrence: CA)
  Receive Date: 20150709
  Receipt Date: 20160301
  Transmission Date: 20160525
  Serious: Yes (Hospitalization)
  Sender: FDA-Public Use
  Company Number: CA-ROCHE-1605931

PATIENT
  Age: 45 Year
  Sex: Female

DRUGS (11)
  1. XOLAIR [Suspect]
     Active Substance: OMALIZUMAB
     Route: 058
     Dates: start: 20150909
  2. SINGULAIR [Concomitant]
     Active Substance: MONTELUKAST SODIUM
  3. ATACAND [Concomitant]
     Active Substance: CANDESARTAN CILEXETIL
  4. DIPHENHYDRAMINE. [Concomitant]
     Active Substance: DIPHENHYDRAMINE
  5. ADVAIR HFA [Concomitant]
     Active Substance: FLUTICASONE PROPIONATE\SALMETEROL XINAFOATE
  6. VENTOLINE [Concomitant]
     Active Substance: ALBUTEROL
  7. PREDNISONE. [Concomitant]
     Active Substance: PREDNISONE
  8. XOLAIR [Suspect]
     Active Substance: OMALIZUMAB
     Indication: ASTHMA
     Route: 058
     Dates: start: 20150401
  9. XOLAIR [Suspect]
     Active Substance: OMALIZUMAB
     Route: 058
     Dates: start: 20160106
  10. RANITIDINE [Concomitant]
     Active Substance: RANITIDINE\RANITIDINE HYDROCHLORIDE
  11. AERIUS (CANADA) [Concomitant]

REACTIONS (8)
  - Pain in extremity [Unknown]
  - Drug ineffective [Unknown]
  - Flank pain [Unknown]
  - Decreased appetite [Unknown]
  - Anaphylactic shock [Recovered/Resolved]
  - Asthma [Recovering/Resolving]
  - Abdominal pain [Unknown]
  - Haematuria [Unknown]

NARRATIVE: CASE EVENT DATE: 20150622
